FAERS Safety Report 12194660 (Version 2)
Quarter: 2016Q2

REPORT INFORMATION
  Report Type: Report from Study
  Country: JP (occurrence: JP)
  Receive Date: 20160321
  Receipt Date: 20160608
  Transmission Date: 20160815
  Serious: Yes (Hospitalization)
  Sender: FDA-Public Use
  Company Number: JP-EISAI MEDICAL RESEARCH-EC-2016-015386

PATIENT
  Age: 82 Year
  Sex: Male
  Weight: 51 kg

DRUGS (9)
  1. LEVOTHYROXINE SODIUM HYDRATE [Concomitant]
  2. ARTIST [Concomitant]
     Active Substance: CARVEDILOL
  3. LENVIMA [Suspect]
     Active Substance: LENVATINIB
     Route: 048
     Dates: start: 20150826, end: 20150901
  4. LEVOFLOXACIN HEMIHYDRATE [Concomitant]
     Active Substance: LEVOFLOXACIN
  5. LENVIMA [Suspect]
     Active Substance: LENVATINIB
     Indication: PAPILLARY THYROID CANCER
     Route: 048
     Dates: start: 20150819, end: 20150820
  6. LENVIMA [Suspect]
     Active Substance: LENVATINIB
     Route: 048
     Dates: start: 20150902, end: 20150903
  7. HIRUDOID [Concomitant]
     Active Substance: GLYCOSAMINOGLYCANS
  8. LENVIMA [Suspect]
     Active Substance: LENVATINIB
     Route: 048
     Dates: start: 20150909, end: 20150928
  9. PASTARON [Concomitant]
     Active Substance: UREA

REACTIONS (1)
  - Hypertension [Recovered/Resolved]

NARRATIVE: CASE EVENT DATE: 20150820
